FAERS Safety Report 15289435 (Version 1)
Quarter: 2018Q3

REPORT INFORMATION
  Report Type: Spontaneous
  Country: RO (occurrence: RO)
  Receive Date: 20180817
  Receipt Date: 20180817
  Transmission Date: 20181010
  Serious: Yes (Hospitalization, Disabling, Other)
  Sender: FDA-Public Use
  Company Number: RO-SA-2018SA115886

PATIENT
  Age: 69 Year
  Sex: Female

DRUGS (2)
  1. INSULIN [Concomitant]
     Active Substance: INSULIN NOS
     Indication: TYPE 1 DIABETES MELLITUS
  2. INDAPAMIDE. [Suspect]
     Active Substance: INDAPAMIDE
     Dosage: TABLET

REACTIONS (10)
  - Creatinine renal clearance decreased [Recovered/Resolved]
  - Hyponatraemia [Recovering/Resolving]
  - Intentional product misuse [Unknown]
  - Treatment noncompliance [Unknown]
  - Dyspnoea exertional [Recovering/Resolving]
  - Polydipsia [Unknown]
  - Renal function test abnormal [Recovered/Resolved]
  - Oedema peripheral [Recovering/Resolving]
  - Vertigo [Recovering/Resolving]
  - Asthenia [Recovering/Resolving]

NARRATIVE: CASE EVENT DATE: 2018
